FAERS Safety Report 4901906-7 (Version None)
Quarter: 2006Q1

REPORT INFORMATION
  Report Type: 
  Country: None (occurrence: None)
  Receive Date: 20060202
  Receipt Date: 20060202
  Transmission Date: 20060701
  Serious: Yes (Hospitalization)
  Sender: FDA-Public Use
  Company Number: None

PATIENT
  Sex: Male
  Weight: 104.3273 kg

DRUGS (5)
  1. LIPITOR [Suspect]
     Indication: HYPERLIPIDAEMIA
     Dosage: 1 TABLET DAILY PO
     Route: 048
  2. ZOLOFT [Concomitant]
  3. CYCLOBENZAPRINE HCL [Concomitant]
  4. NABUMETONEL [Concomitant]
  5. FLONASE [Concomitant]

REACTIONS (1)
  - RHABDOMYOLYSIS [None]
